FAERS Safety Report 16896963 (Version 2)
Quarter: 2019Q4

REPORT INFORMATION
  Report Type: Spontaneous
  Country: US (occurrence: US)
  Receive Date: 20191009
  Receipt Date: 20191010
  Transmission Date: 20200122
  Serious: No
  Sender: FDA-Public Use
  Company Number: US-JNJFOC-20191003263

PATIENT
  Sex: Female

DRUGS (2)
  1. WOMENS ROGAINE UNSCENTED [Suspect]
     Active Substance: MINOXIDIL
     Indication: ALOPECIA
     Dosage: HALF CAPFUL ONCE A DAY THEN WENT TO EVERY OTHER DAY
     Route: 061
  2. WOMENS ROGAINE UNSCENTED [Suspect]
     Active Substance: MINOXIDIL
     Dosage: HALF CAPFUL ONCE A DAY THEN WENT TO EVERY OTHER DAY
     Route: 061

REACTIONS (3)
  - Inappropriate schedule of product administration [Unknown]
  - Seborrhoea [Recovered/Resolved]
  - Hair colour changes [Recovered/Resolved]
